FAERS Safety Report 9175561 (Version 1)
Quarter: 2012Q4

REPORT INFORMATION
  Report Type: 
  Country: US (occurrence: US)
  Receive Date: 20120913
  Receipt Date: 20120913
  Transmission Date: 20130627
  Serious: No
  Sender: FDA-Public Use
  Company Number: US-009507513-1209USA001144

PATIENT

DRUGS (2)
  1. NEXPLANON [Suspect]
     Indication: CONTRACEPTION
     Dosage: 1 rod
     Route: 059
  2. IMPLANON [Suspect]

REACTIONS (2)
  - Implant site pruritus [Unknown]
  - Medical device complication [Unknown]
